FAERS Safety Report 13239291 (Version 5)
Quarter: 2017Q2

REPORT INFORMATION
  Report Type: Spontaneous
  Country: US (occurrence: US)
  Receive Date: 20170216
  Receipt Date: 20170607
  Transmission Date: 20170830
  Serious: Yes (Other)
  Sender: FDA-Public Use
  Company Number: US-ACTELION-A-NJ2017-149925

PATIENT
  Age: 51 Year
  Sex: Female
  Weight: 102.49 kg

DRUGS (6)
  1. UPTRAVI [Suspect]
     Active Substance: SELEXIPAG
     Dosage: 400 MCG, BID
     Route: 048
     Dates: end: 201702
  2. TYVASO [Suspect]
     Active Substance: TREPROSTINIL
     Indication: PULMONARY HYPERTENSION
     Dosage: 18-54 MCG, TID
     Route: 055
     Dates: start: 20110608
  3. COUMADIN [Concomitant]
     Active Substance: WARFARIN SODIUM
  4. LETAIRIS [Concomitant]
     Active Substance: AMBRISENTAN
  5. SILDENAFIL CITRATE. [Concomitant]
     Active Substance: SILDENAFIL CITRATE
  6. UPTRAVI [Suspect]
     Active Substance: SELEXIPAG
     Indication: PULMONARY ARTERIAL HYPERTENSION
     Dosage: 200 MCG, UNK
     Route: 048
     Dates: start: 20170203

REACTIONS (15)
  - Bedridden [Unknown]
  - Hypertension [Unknown]
  - Diarrhoea [Unknown]
  - Drug intolerance [Unknown]
  - Palpitations [Recovered/Resolved]
  - Ear pain [Unknown]
  - Back pain [Unknown]
  - Pain [Unknown]
  - Peripheral swelling [Unknown]
  - Gait disturbance [Unknown]
  - Pulmonary oedema [Unknown]
  - Fluid retention [Unknown]
  - Dizziness [Unknown]
  - Myalgia [Unknown]
  - Ear infection [Unknown]

NARRATIVE: CASE EVENT DATE: 201702
